FAERS Safety Report 18695310 (Version 1)
Quarter: 2021Q1

REPORT INFORMATION
  Report Type: Spontaneous
  Country: US (occurrence: US)
  Receive Date: 20210104
  Receipt Date: 20210104
  Transmission Date: 20210419
  Serious: Yes (Other)
  Sender: FDA-Public Use
  Company Number: US-JUBILANT CADISTA PHARMACEUTICALS-2020JUB00376

PATIENT
  Age: 59 Year
  Sex: Female

DRUGS (2)
  1. LOSARTAN POTASSIUM. [Suspect]
     Active Substance: LOSARTAN POTASSIUM
     Indication: HYPERTENSION
     Route: 065
  2. LOSARTAN POTASSIUM. [Suspect]
     Active Substance: LOSARTAN POTASSIUM
     Indication: MICROALBUMINURIA

REACTIONS (4)
  - Sprue-like enteropathy [Recovered/Resolved]
  - Intestinal villi atrophy [Recovered/Resolved]
  - Skin ulcer [Recovered/Resolved]
  - Anaemia [Recovered/Resolved]
